FAERS Safety Report 16342472 (Version 3)
Quarter: 2020Q2

REPORT INFORMATION
  Report Type: Spontaneous
  Country: US (occurrence: US)
  Receive Date: 20190522
  Receipt Date: 20200527
  Transmission Date: 20200713
  Serious: No
  Sender: FDA-Public Use
  Company Number: US-ROCHE-2322712

PATIENT
  Age: 62 Year
  Sex: Female
  Weight: 64.01 kg

DRUGS (7)
  1. OCREVUS [Suspect]
     Active Substance: OCRELIZUMAB
     Indication: RELAPSING-REMITTING MULTIPLE SCLEROSIS
     Dosage: FIRST HALF DOSE
     Route: 042
     Dates: start: 20190401
  2. METOPROLOL. [Concomitant]
     Active Substance: METOPROLOL
  3. ACYCLOVIR [ACICLOVIR] [Concomitant]
     Active Substance: ACYCLOVIR
  4. SYNTHROID [Concomitant]
     Active Substance: LEVOTHYROXINE SODIUM
     Route: 065
  5. DOXYCYCLINE. [Concomitant]
     Active Substance: DOXYCYCLINE
     Indication: SKIN INFECTION
  6. AMBIEN [Concomitant]
     Active Substance: ZOLPIDEM TARTRATE
  7. XANAX [Concomitant]
     Active Substance: ALPRAZOLAM

REACTIONS (5)
  - Hair texture abnormal [Unknown]
  - Lymph node pain [Recovering/Resolving]
  - Skin infection [Recovering/Resolving]
  - Weight increased [Unknown]
  - Alopecia [Unknown]

NARRATIVE: CASE EVENT DATE: 201904
